FAERS Safety Report 18973557 (Version 1)
Quarter: 2021Q1

REPORT INFORMATION
  Report Type: Spontaneous
  Country: JP (occurrence: JP)
  Receive Date: 20210305
  Receipt Date: 20210305
  Transmission Date: 20210420
  Serious: Yes (Other)
  Sender: FDA-Public Use
  Company Number: JP-PFIZER INC-2021213112

PATIENT

DRUGS (1)
  1. SELARA 100MG [Suspect]
     Active Substance: EPLERENONE
     Indication: CARDIAC FAILURE CHRONIC
     Dosage: UNK

REACTIONS (3)
  - Sarcoidosis [Unknown]
  - Uveitis [Unknown]
  - Angiotensin converting enzyme increased [Unknown]
